FAERS Safety Report 22803777 (Version 5)
Quarter: 2024Q3

REPORT INFORMATION
  Report Type: Report from Study
  Country: DE (occurrence: DE)
  Receive Date: 20230809
  Receipt Date: 20240926
  Transmission Date: 20241016
  Serious: Yes (Other)
  Sender: TAKEDA
  Company Number: DE-TAKEDA-2023TUS077446

PATIENT
  Age: 71 Year
  Sex: Female

DRUGS (15)
  1. TEDUGLUTIDE [Suspect]
     Active Substance: TEDUGLUTIDE
     Indication: Short-bowel syndrome
     Dosage: 1.8 MILLIGRAM, QD
     Route: 042
     Dates: start: 20150724, end: 20190501
  2. TEDUGLUTIDE [Suspect]
     Active Substance: TEDUGLUTIDE
     Indication: Short-bowel syndrome
     Dosage: 1.8 MILLIGRAM, QD
     Route: 042
     Dates: start: 20150724, end: 20190501
  3. TEDUGLUTIDE [Suspect]
     Active Substance: TEDUGLUTIDE
     Indication: Short-bowel syndrome
     Dosage: 1.8 MILLIGRAM, QD
     Route: 042
     Dates: start: 20150724, end: 20190501
  4. TEDUGLUTIDE [Suspect]
     Active Substance: TEDUGLUTIDE
     Indication: Short-bowel syndrome
     Dosage: 1.8 MILLIGRAM, QD
     Route: 042
     Dates: start: 20150724, end: 20190501
  5. TEDUGLUTIDE [Suspect]
     Active Substance: TEDUGLUTIDE
     Dosage: 1.8 MILLIGRAM, 3/WEEK
     Route: 042
     Dates: start: 20190523, end: 20210810
  6. TEDUGLUTIDE [Suspect]
     Active Substance: TEDUGLUTIDE
     Dosage: 1.8 MILLIGRAM, 3/WEEK
     Route: 042
     Dates: start: 20190523, end: 20210810
  7. TEDUGLUTIDE [Suspect]
     Active Substance: TEDUGLUTIDE
     Dosage: 1.8 MILLIGRAM, 3/WEEK
     Route: 042
     Dates: start: 20190523, end: 20210810
  8. TEDUGLUTIDE [Suspect]
     Active Substance: TEDUGLUTIDE
     Dosage: 1.8 MILLIGRAM, 3/WEEK
     Route: 042
     Dates: start: 20190523, end: 20210810
  9. TEDUGLUTIDE [Suspect]
     Active Substance: TEDUGLUTIDE
     Dosage: 1.5 MILLIGRAM, 3/WEEK
     Route: 042
     Dates: start: 20210811
  10. TEDUGLUTIDE [Suspect]
     Active Substance: TEDUGLUTIDE
     Dosage: 1.5 MILLIGRAM, 3/WEEK
     Route: 042
     Dates: start: 20210811
  11. TEDUGLUTIDE [Suspect]
     Active Substance: TEDUGLUTIDE
     Dosage: 1.5 MILLIGRAM, 3/WEEK
     Route: 042
     Dates: start: 20210811
  12. TEDUGLUTIDE [Suspect]
     Active Substance: TEDUGLUTIDE
     Dosage: 1.5 MILLIGRAM, 3/WEEK
     Route: 042
     Dates: start: 20210811
  13. ASPIRIN [Concomitant]
     Active Substance: ASPIRIN
     Indication: Coeliac artery stenosis
     Dosage: 100 MILLIGRAM, QD
     Route: 048
     Dates: start: 20210615, end: 20230914
  14. TEDUGLUTIDE [Concomitant]
     Active Substance: TEDUGLUTIDE
     Dosage: 0.3 MILLIGRAM, QOD
     Route: 058
     Dates: start: 20150724, end: 20210810
  15. TEDUGLUTIDE [Concomitant]
     Active Substance: TEDUGLUTIDE
     Dosage: 0.3 MILLIGRAM, 2/WEEK
     Route: 058
     Dates: start: 20210810

REACTIONS (5)
  - Hyperkalaemia [Not Recovered/Not Resolved]
  - Angina pectoris [Not Recovered/Not Resolved]
  - Vitamin D deficiency [Not Recovered/Not Resolved]
  - Blood parathyroid hormone increased [Not Recovered/Not Resolved]
  - Gastrointestinal infection [Recovered/Resolved]

NARRATIVE: CASE EVENT DATE: 20230801
